FAERS Safety Report 24732397 (Version 1)
Quarter: 2024Q4

REPORT INFORMATION
  Report Type: Spontaneous
  Country: US (occurrence: US)
  Receive Date: 20241213
  Receipt Date: 20241213
  Transmission Date: 20250115
  Serious: No
  Sender: EISAI
  Company Number: US-Eisai-EC-2024-179036

PATIENT
  Age: 70 Year
  Sex: Male
  Weight: 90.9 kg

DRUGS (13)
  1. LEQEMBI [Suspect]
     Active Substance: LECANEMAB-IRMB
     Indication: Dementia Alzheimer^s type
     Dosage: DOSE UNKNOWN
     Route: 042
     Dates: start: 20241113
  2. LOSARTAN [Concomitant]
     Active Substance: LOSARTAN
  3. VITAMIN B12 [Concomitant]
     Active Substance: CYANOCOBALAMIN
  4. MEMANTINE [Concomitant]
     Active Substance: MEMANTINE
  5. DULOXETINE [Concomitant]
     Active Substance: DULOXETINE
  6. FOLIC ACID [Concomitant]
     Active Substance: FOLIC ACID
  7. MELOXICAM [Concomitant]
     Active Substance: MELOXICAM
  8. FLUTICASONE [Concomitant]
     Active Substance: FLUTICASONE
  9. ATORVASTATIN [Concomitant]
     Active Substance: ATORVASTATIN
  10. METFORMIN [Concomitant]
     Active Substance: METFORMIN HYDROCHLORIDE
  11. TYLENOL [Concomitant]
     Active Substance: ACETAMINOPHEN
  12. PEPCID [Concomitant]
     Active Substance: FAMOTIDINE
  13. CLARITIN [Concomitant]
     Active Substance: LORATADINE

REACTIONS (6)
  - Nausea [Recovered/Resolved]
  - Feeling cold [Unknown]
  - Asthenia [Unknown]
  - Vomiting [Recovered/Resolved]
  - Fatigue [Unknown]
  - Headache [Unknown]

NARRATIVE: CASE EVENT DATE: 20241113
